FAERS Safety Report 7346337-8 (Version None)
Quarter: 2011Q1

REPORT INFORMATION
  Report Type: 
  Country: None (occurrence: None)
  Receive Date: 20110311
  Receipt Date: 20100927
  Transmission Date: 20110831
  Serious: Yes (Hospitalization, Other)
  Sender: FDA-Public Use
  Company Number: US-BAYER-201025483NA

PATIENT
  Sex: Female
  Weight: 95.238 kg

DRUGS (5)
  1. YAZ [Suspect]
     Indication: CONTRACEPTION
     Route: 048
     Dates: start: 20050901, end: 20080501
  2. FUROSEMIDE [Concomitant]
     Dosage: UNK
     Dates: start: 20080828
  3. IBUPROFEN [Concomitant]
  4. LISINOPRIL [Concomitant]
     Dosage: UNK
     Dates: start: 20080601, end: 20090601
  5. YASMIN [Suspect]
     Indication: CONTRACEPTION
     Route: 048
     Dates: start: 20031001, end: 20050801

REACTIONS (3)
  - CARDIAC ARREST [None]
  - CARDIAC FAILURE CONGESTIVE [None]
  - CARDIAC FAILURE ACUTE [None]
